FAERS Safety Report 23081372 (Version 2)
Quarter: 2025Q2

REPORT INFORMATION
  Report Type: Report from Study
  Country: US (occurrence: US)
  Receive Date: 20231018
  Receipt Date: 20250619
  Transmission Date: 20250716
  Serious: Yes (Hospitalization, Other)
  Sender: ABBVIE
  Company Number: US-ABBVIE-5454203

PATIENT
  Age: 67 Year
  Sex: Male

DRUGS (1)
  1. HUMIRA [Suspect]
     Active Substance: ADALIMUMAB
     Indication: Rheumatoid arthritis
     Route: 058
     Dates: start: 20221017, end: 20231016

REACTIONS (3)
  - Renal failure [Recovered/Resolved]
  - Laboratory test abnormal [Recovered/Resolved]
  - Vitamin C decreased [Unknown]

NARRATIVE: CASE EVENT DATE: 20230801
